FAERS Safety Report 19117737 (Version 2)
Quarter: 2024Q1

REPORT INFORMATION
  Report Type: Spontaneous
  Country: IE (occurrence: None)
  Receive Date: 20210409
  Receipt Date: 20240201
  Transmission Date: 20240410
  Serious: Yes (Other)
  Sender: FDA-Public Use
  Company Number: 2021A245441

PATIENT
  Age: 2 Week
  Weight: 2.4 kg

DRUGS (6)
  1. ESOMEPRAZOLE [Suspect]
     Active Substance: ESOMEPRAZOLE
     Indication: Hyperemesis gravidarum
     Dosage: FOR THE DURATION OF PREGNANCY.
     Route: 064
  2. OMEPRAZOLE [Suspect]
     Active Substance: OMEPRAZOLE
     Indication: Hyperemesis gravidarum
     Dosage: FOR THE DURATION OF PREGNANCY.
     Route: 064
  3. CYCLIZINE [Suspect]
     Active Substance: CYCLIZINE
     Indication: Hyperemesis gravidarum
     Dosage: FOR THE DURATION OF PREGNANCY.
     Route: 064
  4. PROCHLORPERAZINE [Suspect]
     Active Substance: PROCHLORPERAZINE
     Dosage: TREATMENT COMMENCED AT APPROX. 9 WEEKS GESTATION.
     Route: 064
     Dates: start: 20200428
  5. SALBUTAMOL CFC-FREE INHALER [Concomitant]
     Indication: Product used for unknown indication
     Dosage: (DATES OF THERAPY UNSPECIFIED)100UG/INHAL
     Route: 064
  6. OVREENA [Concomitant]
     Indication: Product used for unknown indication
     Dosage: (DATES OF THERAPY UNSPECIFIED)
     Route: 064

REACTIONS (2)
  - Foetal exposure during pregnancy [Not Recovered/Not Resolved]
  - Low birth weight baby [Not Recovered/Not Resolved]
